FAERS Safety Report 5294789-X (Version None)
Quarter: 2007Q2

REPORT INFORMATION
  Report Type: 
  Country: None (occurrence: None)
  Receive Date: 20070411
  Receipt Date: 20070222
  Transmission Date: 20071010
  Serious: No
  Sender: FDA-Public Use
  Company Number: DL2007072

PATIENT
  Age: 35 Year
  Sex: Female

DRUGS (3)
  1. MIFEPRISTONE TABLETS, 200 MG(DANCO LABS) [Suspect]
     Indication: ABORTION INDUCED
     Dosage: 200 MG, ORAL
     Route: 048
     Dates: start: 20070123
  2. MISOPROSTOL [Suspect]
     Indication: ABORTION INDUCED
     Dosage: SEE IMAGE
     Route: 067
     Dates: start: 20070125
  3. MISOPROSTOL [Suspect]
     Indication: ABORTION INDUCED
     Dosage: SEE IMAGE
     Route: 067
     Dates: start: 20070206

REACTIONS (1)
  - ABORTION INCOMPLETE [None]
